FAERS Safety Report 6421650-7 (Version None)
Quarter: 2009Q4

REPORT INFORMATION
  Report Type: 
  Country: None (occurrence: None)
  Receive Date: 20091029
  Receipt Date: 20091029
  Transmission Date: 20100525
  Serious: No
  Sender: FDA-Public Use
  Company Number: None

PATIENT
  Age: 53 Year
  Sex: Female
  Weight: 64.8644 kg

DRUGS (1)
  1. LEVAQUIN [Suspect]
     Indication: RESPIRATORY DISORDER
     Dosage: 1 TAB BY MOUTH DAILY PO
     Route: 048
     Dates: start: 20091016, end: 20091026

REACTIONS (2)
  - ARTHRALGIA [None]
  - JOINT SWELLING [None]
